FAERS Safety Report 11867717 (Version 1)
Quarter: 2015Q4

REPORT INFORMATION
  Report Type: Report from Study
  Country: US (occurrence: US)
  Receive Date: 20151224
  Receipt Date: 20151224
  Transmission Date: 20160305
  Serious: Yes (Hospitalization)
  Sender: FDA-Public Use
  Company Number: US-ABBVIE-15K-163-1522538-00

PATIENT
  Sex: Male

DRUGS (2)
  1. HUMIRA [Suspect]
     Active Substance: ADALIMUMAB
     Indication: JUVENILE IDIOPATHIC ARTHRITIS
     Route: 058
     Dates: start: 201507
  2. PREDNISONE. [Suspect]
     Active Substance: PREDNISONE
     Indication: PRODUCT USED FOR UNKNOWN INDICATION
     Dosage: PULSE IV
     Route: 048
     Dates: start: 2015

REACTIONS (6)
  - Blood cortisol decreased [Recovering/Resolving]
  - Fear of injection [Unknown]
  - Crying [Unknown]
  - Injection site pain [Not Recovered/Not Resolved]
  - Syncope [Recovered/Resolved]
  - Cerebral disorder [Unknown]

NARRATIVE: CASE EVENT DATE: 2015
